FAERS Safety Report 5625503-3 (Version None)
Quarter: 2008Q1

REPORT INFORMATION
  Report Type: 
  Country: None (occurrence: None)
  Receive Date: 20080211
  Receipt Date: 20080131
  Transmission Date: 20080703
  Serious: Yes (Other)
  Sender: FDA-Public Use
  Company Number: 2008AP000347

PATIENT
  Age: 46 Year
  Sex: Female

DRUGS (6)
  1. PAROXETINE HCL [Suspect]
     Dosage: PO; QD
     Route: 048
     Dates: start: 20000107
  2. PAROXETINE HCL [Suspect]
     Dosage: PO; QD
     Route: 048
     Dates: start: 20041118
  3. PAROXETINE HCL [Suspect]
     Dosage: PO; QD
     Route: 048
     Dates: start: 20050101
  4. PAROXETINE HCL [Suspect]
     Dosage: PO; QD
     Route: 048
     Dates: start: 20070919
  5. CITALOPRAM HYDROBROMIDE [Concomitant]
  6. IMIPRAMINE [Concomitant]

REACTIONS (3)
  - AGGRESSION [None]
  - DRUG WITHDRAWAL SYNDROME [None]
  - JOINT STIFFNESS [None]
